FAERS Safety Report 24328588 (Version 1)
Quarter: 2024Q3

REPORT INFORMATION
  Report Type: Spontaneous
  Country: US (occurrence: None)
  Receive Date: 20240917
  Receipt Date: 20240917
  Transmission Date: 20241017
  Serious: Yes (Other)
  Sender: Public
  Company Number: None

PATIENT
  Age: 7 Year
  Sex: Female

DRUGS (1)
  1. IRINOTECAN [Suspect]
     Active Substance: IRINOTECAN
     Indication: Bone cancer
     Dosage: OTHER FREQUENCY : QD FOR 5 DAYS OR 21 DAY CYCLE;?
     Dates: start: 20240914

REACTIONS (1)
  - Vomiting [None]

NARRATIVE: CASE EVENT DATE: 20240916
